FAERS Safety Report 5236449-7 (Version None)
Quarter: 2007Q1

REPORT INFORMATION
  Report Type: 
  Country: None (occurrence: None)
  Receive Date: 20061208
  Receipt Date: 20060728
  Transmission Date: 20070707
  Serious: Yes (Other)
  Sender: FDA-Public Use
  Company Number: 2006UW15273

PATIENT
  Age: 59 Year
  Sex: Male
  Weight: 89.357 kg

DRUGS (6)
  1. CRESTOR [Suspect]
     Indication: BLOOD CHOLESTEROL INCREASED
     Dosage: 10 MG PO
     Route: 048
     Dates: start: 20060701
  2. NIASPAN [Suspect]
     Dates: start: 20060701
  3. TRICOR [Suspect]
     Dates: start: 20060701
  4. ZETIA [Suspect]
     Dates: start: 20060701
  5. ACTOS [Concomitant]
  6. METFORMIN HCL [Concomitant]

REACTIONS (6)
  - ABDOMINAL PAIN UPPER [None]
  - FATIGUE [None]
  - FEELING JITTERY [None]
  - FLATULENCE [None]
  - MALAISE [None]
  - NERVOUSNESS [None]
